FAERS Safety Report 11419125 (Version 1)
Quarter: 2015Q3

REPORT INFORMATION
  Report Type: Spontaneous
  Country: US (occurrence: None)
  Receive Date: 20150824
  Receipt Date: 20150824
  Transmission Date: 20151125
  Serious: Yes (Other)
  Sender: FDA-Public Use
  Company Number: US-2015-3467

PATIENT
  Age: 42 Year
  Sex: Female

DRUGS (19)
  1. CARISOPRODOL. [Concomitant]
     Active Substance: CARISOPRODOL
  2. HYDROCODONE BITARTRATE AND ACETAMINOPHEN (HYDROCODONE BITARTRATE, PARACETAMOL) [Concomitant]
  3. CEPHALEXIN (CEFALEXIN MONOHYDRATE) [Concomitant]
  4. DICYCLOMINE HYDROCHLORIDE. [Concomitant]
     Active Substance: DICYCLOMINE HYDROCHLORIDE
  5. NAVELBINE [Suspect]
     Active Substance: VINORELBINE TARTRATE
     Indication: BREAST CANCER METASTATIC
     Route: 042
     Dates: start: 20150408, end: 201507
  6. LUPRON [Suspect]
     Active Substance: LEUPROLIDE ACETATE
     Indication: BREAST CANCER METASTATIC
     Route: 030
     Dates: start: 20150116
  7. SPIRONOLACTONE. [Concomitant]
     Active Substance: SPIRONOLACTONE
  8. DRONABINOL. [Concomitant]
     Active Substance: DRONABINOL
  9. CIMETIDINE [Concomitant]
     Active Substance: CIMETIDINE
  10. ENALAPRIL MALEATE. [Concomitant]
     Active Substance: ENALAPRIL MALEATE
  11. MORPHINE SULPHATE [Concomitant]
     Active Substance: MORPHINE SULFATE
  12. ZOLPIDEM TARTRATE. [Concomitant]
     Active Substance: ZOLPIDEM TARTRATE
  13. CLINDAMYCIN HYDROCHLORIDE. [Concomitant]
     Active Substance: CLINDAMYCIN HYDROCHLORIDE
  14. IBUPROFEN. [Concomitant]
     Active Substance: IBUPROFEN
  15. FUROSEMIDE. [Concomitant]
     Active Substance: FUROSEMIDE
  16. AMLODIPINE BESYLATE. [Concomitant]
     Active Substance: AMLODIPINE BESYLATE
  17. BUPROPION HYDROCHLORIDE. [Concomitant]
     Active Substance: BUPROPION HYDROCHLORIDE
  18. LORAZEPAM. [Concomitant]
     Active Substance: LORAZEPAM
  19. SIMVASTATIN. [Concomitant]
     Active Substance: SIMVASTATIN

REACTIONS (27)
  - Metastases to liver [None]
  - Weight increased [None]
  - Hypertension [None]
  - Gastrooesophageal reflux disease [None]
  - Dry mouth [None]
  - Palpitations [None]
  - Oedema peripheral [None]
  - Micturition urgency [None]
  - Bone pain [None]
  - Paraesthesia [None]
  - Loss of libido [None]
  - Hypoaesthesia [None]
  - Metastases to bone [None]
  - Nausea [None]
  - Rash [None]
  - Disturbance in attention [None]
  - Myalgia [None]
  - Palmar-plantar erythrodysaesthesia syndrome [None]
  - Disease progression [None]
  - Dizziness [None]
  - Hot flush [None]
  - Lacrimation increased [None]
  - Arthralgia [None]
  - Asthenia [None]
  - Initial insomnia [None]
  - Dysgeusia [None]
  - Headache [None]
